FAERS Safety Report 6728051-2 (Version None)
Quarter: 2010Q2

REPORT INFORMATION
  Report Type: 
  Country: None (occurrence: None)
  Receive Date: 20100517
  Receipt Date: 20100510
  Transmission Date: 20101027
  Serious: Yes (Other)
  Sender: FDA-Public Use
  Company Number: TR-ASTRAZENECA-2010SE21845

PATIENT
  Age: 39 Year
  Sex: Male

DRUGS (5)
  1. CRESTOR [Suspect]
     Route: 048
     Dates: start: 20060501
  2. METOPROLOL SUCCINATE [Concomitant]
     Route: 048
  3. CORASPIN [Concomitant]
     Route: 065
  4. DELIX PROTEC [Concomitant]
     Route: 065
  5. LIPOFEN SR [Concomitant]
     Route: 065

REACTIONS (1)
  - DIABETES MELLITUS [None]
